FAERS Safety Report 7932979 (Version 4)
Quarter: 2013Q3

REPORT INFORMATION
  Report Type: Report from Study
  Country: DE (occurrence: DE)
  Receive Date: 20110506
  Receipt Date: 20130801
  Transmission Date: 20140515
  Serious: Yes (Hospitalization)
  Sender: FDA-Public Use
  Company Number: PHHO2011DE07557

PATIENT
  Age: 70 Year
  Sex: Female
  Weight: 75 kg

DRUGS (1)
  1. ZOLEDRONATE [Suspect]
     Indication: BREAST CANCER
     Dosage: 4 MG, EVERY 3 MONTHS
     Route: 042
     Dates: start: 200706

REACTIONS (1)
  - Osteonecrosis of jaw [Recovered/Resolved]
